FAERS Safety Report 13212767 (Version 2)
Quarter: 2017Q2

REPORT INFORMATION
  Report Type: Report from Study
  Country: US (occurrence: US)
  Receive Date: 20170210
  Receipt Date: 20170501
  Transmission Date: 20170830
  Serious: Yes (Death, Life-Threatening, Hospitalization)
  Sender: FDA-Public Use
  Company Number: US-ROCHE-1890389

PATIENT
  Age: 63 Year
  Sex: Male
  Weight: 72.5 kg

DRUGS (2)
  1. VISMODEGIB [Suspect]
     Active Substance: VISMODEGIB
     Indication: NEOPLASM
     Dosage: LAST DOSE PRIOR TO AE ONSET 20/NOV/2016?TOTAL DOSE ADMINISTERED THIS COURSE 600 MG
     Route: 048
     Dates: start: 20161117
  2. TAXOL [Concomitant]
     Active Substance: PACLITAXEL
     Route: 065
     Dates: start: 201507, end: 201609

REACTIONS (2)
  - Disease progression [Fatal]
  - Dyspnoea [Unknown]

NARRATIVE: CASE EVENT DATE: 20161120
